FAERS Safety Report 9449807 (Version 4)
Quarter: 2013Q4

REPORT INFORMATION
  Report Type: Report from Study
  Country: US (occurrence: US)
  Receive Date: 20130809
  Receipt Date: 20131004
  Transmission Date: 20140711
  Serious: Yes (Hospitalization, Other)
  Sender: FDA-Public Use
  Company Number: US-JNJFOC-20130800552

PATIENT
  Age: 78 Year
  Sex: Male

DRUGS (8)
  1. REMICADE [Suspect]
     Indication: CROHN^S DISEASE
     Route: 042
     Dates: start: 20070720
  2. AMBIEN [Concomitant]
     Indication: SLEEP DISORDER THERAPY
     Route: 065
  3. FLOMAX [Concomitant]
     Route: 065
  4. FLORA [Concomitant]
     Route: 065
  5. FLUTICASONE [Concomitant]
     Route: 065
  6. TOPROL [Concomitant]
     Indication: BLOOD PRESSURE
     Route: 065
  7. ZOCOR [Concomitant]
     Indication: BLOOD CHOLESTEROL
     Route: 065
  8. LIBRAX [Concomitant]
     Indication: IRRITABLE BOWEL SYNDROME
     Route: 065

REACTIONS (1)
  - Nerve compression [Recovering/Resolving]
